FAERS Safety Report 9475734 (Version 2)
Quarter: 2013Q4

REPORT INFORMATION
  Report Type: Report from Study
  Country: DE (occurrence: DE)
  Receive Date: 20130826
  Receipt Date: 20131129
  Transmission Date: 20140711
  Serious: Yes (Hospitalization)
  Sender: FDA-Public Use
  Company Number: DE-AMGEN-DEUCT2013059301

PATIENT
  Age: 58 Year
  Sex: Male

DRUGS (4)
  1. PANITUMUMAB [Suspect]
     Indication: GASTRIC CANCER
     Dosage: 9 MG/KG, UNK
     Route: 042
     Dates: start: 20130514
  2. EPIRUBICIN [Concomitant]
     Indication: GASTRIC CANCER
     Dosage: 50 MG/M2, UNK
     Route: 042
     Dates: start: 20130514
  3. CISPLATIN [Concomitant]
     Indication: GASTRIC CANCER
     Dosage: 59.89 MG/M2, UNK
     Route: 042
     Dates: start: 20130514
  4. CAPECITABINE [Concomitant]
     Indication: GASTRIC CANCER
     Dosage: 1263.73 MG/M2, UNK
     Route: 042
     Dates: start: 20130514

REACTIONS (3)
  - Thrombosis in device [Not Recovered/Not Resolved]
  - Device related infection [Recovered/Resolved]
  - Pleural effusion [Recovered/Resolved]
